FAERS Safety Report 9148706 (Version 1)
Quarter: 2013Q1

REPORT INFORMATION
  Report Type: Spontaneous
  Country: US (occurrence: US)
  Receive Date: 20130308
  Receipt Date: 20130308
  Transmission Date: 20140127
  Serious: No
  Sender: FDA-Public Use
  Company Number: US-ENDO PHARMACEUTICALS INC.-OPCR20122035

PATIENT
  Age: 61 Year
  Sex: Male

DRUGS (3)
  1. OPANA ER [Suspect]
     Indication: MUSCULOSKELETAL PAIN
     Route: 048
     Dates: start: 201210
  2. PERCOCET [Concomitant]
     Indication: BREAKTHROUGH PAIN
     Dosage: 10MG/325MG
     Route: 048
  3. ENALAPRIL [Concomitant]
     Indication: HYPERTENSION
     Route: 048

REACTIONS (1)
  - Incorrect dose administered [Recovered/Resolved]
